FAERS Safety Report 7383004-9 (Version None)
Quarter: 2011Q1

REPORT INFORMATION
  Report Type: 
  Country: None (occurrence: None)
  Receive Date: 20110328
  Receipt Date: 20110328
  Transmission Date: 20110831
  Serious: Yes (Life-Threatening, Hospitalization)
  Sender: FDA-Public Use
  Company Number: None

PATIENT
  Age: 34 Year
  Sex: Male
  Weight: 84.369 kg

DRUGS (3)
  1. IOPHEN-C NR [Suspect]
     Indication: NASOPHARYNGITIS
     Dosage: 2 TEASPOON EVERY 6 HOURS PO
     Route: 048
     Dates: start: 20110321, end: 20110321
  2. ROBITUSSIN AC [Suspect]
  3. CHERACOL [Suspect]

REACTIONS (6)
  - DIZZINESS [None]
  - ANGER [None]
  - HEART RATE IRREGULAR [None]
  - MOOD ALTERED [None]
  - CARDIAC DISORDER [None]
  - FEELING ABNORMAL [None]
